FAERS Safety Report 8486283-X (Version None)
Quarter: 2012Q3

REPORT INFORMATION
  Report Type: 
  Country: None (occurrence: None)
  Receive Date: 20120703
  Receipt Date: 20120622
  Transmission Date: 20120928
  Serious: Yes (Death, Hospitalization)
  Sender: FDA-Public Use
  Company Number: US-GLAXOSMITHKLINE-A0744027A

PATIENT
  Age: 66 Year
  Sex: Male
  Weight: 81.8 kg

DRUGS (2)
  1. AVANDIA [Suspect]
     Indication: DIABETES MELLITUS
     Dosage: 8MG PER DAY
     Route: 048
     Dates: start: 19990101, end: 20050101
  2. AVANDAMET [Suspect]
     Indication: DIABETES MELLITUS
     Route: 048

REACTIONS (6)
  - MYOCARDIAL INFARCTION [None]
  - CARDIAC FAILURE CONGESTIVE [None]
  - DEATH [None]
  - CEREBROVASCULAR ACCIDENT [None]
  - CARDIOVASCULAR DISORDER [None]
  - SICK SINUS SYNDROME [None]
